FAERS Safety Report 10726288 (Version 4)
Quarter: 2015Q2

REPORT INFORMATION
  Report Type: Report from Study
  Country: US (occurrence: US)
  Receive Date: 20150121
  Receipt Date: 20150406
  Transmission Date: 20150821
  Serious: Yes (Death)
  Sender: FDA-Public Use
  Company Number: PHEH2015US001554

PATIENT
  Sex: Male
  Weight: 49.9 kg

DRUGS (1)
  1. ZOMETA [Suspect]
     Active Substance: ZOLEDRONIC ACID
     Indication: HEPATIC CANCER
     Dosage: 4 MG/5 ML
     Route: 065

REACTIONS (2)
  - Product use issue [Unknown]
  - Hepatic cancer [Fatal]
